FAERS Safety Report 10518734 (Version 2)
Quarter: 2014Q4

REPORT INFORMATION
  Report Type: Spontaneous
  Country: JP (occurrence: JP)
  Receive Date: 20141015
  Receipt Date: 20141015
  Transmission Date: 20150528
  Serious: Yes (Hospitalization, Other)
  Sender: FDA-Public Use
  Company Number: JP-LEO PHARMA-221063

PATIENT
  Age: 78 Year
  Sex: Male

DRUGS (2)
  1. DAIVONEX OINTMENT [Suspect]
     Active Substance: CALCIPOTRIENE
     Indication: PSORIASIS
     Route: 061
  2. OXAROL [Suspect]
     Active Substance: MAXACALCITOL
     Indication: PSORIASIS
     Route: 061

REACTIONS (3)
  - Renal impairment [Recovered/Resolved]
  - Depressed level of consciousness [Recovered/Resolved]
  - Hypercalcaemia [Recovered/Resolved]

NARRATIVE: CASE EVENT DATE: 201211
